FAERS Safety Report 7348475-2 (Version None)
Quarter: 2011Q1

REPORT INFORMATION
  Report Type: 
  Country: None (occurrence: None)
  Receive Date: 20110314
  Receipt Date: 20110302
  Transmission Date: 20110831
  Serious: Yes (Hospitalization)
  Sender: FDA-Public Use
  Company Number: US-ASTRAZENECA-2011SE11858

PATIENT
  Age: 70 Year
  Sex: Male

DRUGS (8)
  1. LOPID [Concomitant]
     Route: 048
  2. NEURONTIN [Concomitant]
     Route: 048
     Dates: start: 20091021
  3. CRESTOR [Suspect]
     Route: 048
     Dates: start: 20110124
  4. DEXILANT [Concomitant]
     Route: 048
     Dates: start: 20110124
  5. FLEXERIL [Concomitant]
  6. ACTOS [Concomitant]
     Route: 048
     Dates: start: 20100223
  7. ADVAIR DISKUS 100/50 [Concomitant]
     Dosage: 250-50 MCG/DOSE MISC ONE INHALATION BID
     Route: 055
  8. QC ASPIRIN [Concomitant]
     Route: 048

REACTIONS (1)
  - MYOCARDIAL INFARCTION [None]
